FAERS Safety Report 10497924 (Version 5)
Quarter: 2015Q2

REPORT INFORMATION
  Report Type: Report from Study
  Country: US (occurrence: US)
  Receive Date: 20141006
  Receipt Date: 20150421
  Transmission Date: 20150821
  Serious: Yes (Other)
  Sender: FDA-Public Use
  Company Number: US-SA-2014SA009787

PATIENT
  Age: 59 Year
  Sex: Female

DRUGS (5)
  1. AUBAGIO [Suspect]
     Active Substance: TERIFLUNOMIDE
     Indication: MULTIPLE SCLEROSIS
     Route: 048
     Dates: start: 20131217
  2. AUBAGIO [Suspect]
     Active Substance: TERIFLUNOMIDE
     Indication: MULTIPLE SCLEROSIS
     Route: 048
     Dates: end: 201412
  3. SPIRONOLACTONE. [Concomitant]
     Active Substance: SPIRONOLACTONE
     Indication: ALOPECIA
     Dates: start: 1985
  4. LEXAPRO [Concomitant]
     Active Substance: ESCITALOPRAM OXALATE
     Indication: DEPRESSION
     Dates: start: 2005
  5. REBIF [Suspect]
     Active Substance: INTERFERON BETA-1A
     Dosage: 1/2 DOSE
     Route: 065
     Dates: start: 20040201, end: 20131217

REACTIONS (13)
  - Chest discomfort [Recovered/Resolved]
  - Alopecia [Not Recovered/Not Resolved]
  - Immunodeficiency [Unknown]
  - Feeling abnormal [Recovered/Resolved]
  - Pyrexia [Unknown]
  - Respiratory tract congestion [Unknown]
  - Pneumonia [Unknown]
  - Cough [Unknown]
  - Upper respiratory tract infection [Unknown]
  - Palpitations [Recovered/Resolved]
  - Diarrhoea [Recovering/Resolving]
  - Dyspnoea [Recovered/Resolved]
  - Drug dose omission [Unknown]

NARRATIVE: CASE EVENT DATE: 20140114
